FAERS Safety Report 8073294-1 (Version None)
Quarter: 2011Q4

REPORT INFORMATION
  Report Type: 
  Country: None (occurrence: None)
  Receive Date: 20111221
  Receipt Date: 20111017
  Transmission Date: 20120403
  Serious: Yes (Hospitalization)
  Sender: FDA-Public Use
  Company Number: PHEH2010US01371

PATIENT
  Age: 90 Year
  Sex: Female

DRUGS (2)
  1. EXJADE [Suspect]
     Indication: MYELODYSPLASTIC SYNDROME
     Dosage: 1000 MG, DAILY, ORAL, 1000 MG, BID, ORAL
     Route: 048
  2. EXJADE [Suspect]
     Indication: IRON OVERLOAD
     Dosage: 1000 MG, DAILY, ORAL, 1000 MG, BID, ORAL
     Route: 048

REACTIONS (2)
  - DIARRHOEA [None]
  - GASTRIC ULCER HAEMORRHAGE [None]
